FAERS Safety Report 14033465 (Version 3)
Quarter: 2017Q4

REPORT INFORMATION
  Report Type: Spontaneous
  Country: RO (occurrence: RO)
  Receive Date: 20171002
  Receipt Date: 20171031
  Transmission Date: 20180321
  Serious: Yes (Hospitalization, Other)
  Sender: FDA-Public Use
  Company Number: RO-BAUSCH-BL-2017-028219

PATIENT
  Age: 40 Year
  Sex: Male

DRUGS (12)
  1. METRONIDAZOLE. [Suspect]
     Active Substance: METRONIDAZOLE
     Route: 048
  2. VANCOMYCIN [Suspect]
     Active Substance: VANCOMYCIN
     Route: 065
  3. METRONIDAZOLE. [Suspect]
     Active Substance: METRONIDAZOLE
     Dosage: PER DAY
     Route: 042
     Dates: start: 2014
  4. VANCOMYCIN [Suspect]
     Active Substance: VANCOMYCIN
     Indication: CLOSTRIDIUM DIFFICILE COLITIS
     Dosage: PER DAY
     Route: 048
     Dates: start: 2014
  5. VANCOMYCIN [Suspect]
     Active Substance: VANCOMYCIN
     Route: 048
  6. VANCOMYCIN [Suspect]
     Active Substance: VANCOMYCIN
     Dosage: TAPERING REGIMEN, WITH HALVING DOSES WEEKLY UNTIL 125 MG EVERY OTHER DAY FOR 7 DAYS
     Route: 048
  7. ENTECAVIR. [Concomitant]
     Active Substance: ENTECAVIR
     Indication: CHRONIC HEPATITIS B
     Dosage: PER DAY
  8. METRONIDAZOLE. [Suspect]
     Active Substance: METRONIDAZOLE
     Indication: CLOSTRIDIUM DIFFICILE COLITIS
     Dosage: PER DAY
     Route: 048
     Dates: start: 2014
  9. VANCOMYCIN [Suspect]
     Active Substance: VANCOMYCIN
     Route: 048
  10. SACCHAROMYCES BOULARDII [Suspect]
     Active Substance: SACCHAROMYCES CEREVISIAE
     Indication: CLOSTRIDIUM DIFFICILE COLITIS
     Dosage: PER DAY
     Route: 065
     Dates: start: 2014
  11. INFLIXIMAB [Concomitant]
     Active Substance: INFLIXIMAB
     Indication: COLITIS ULCERATIVE
     Dosage: FIRST INDUCTION DOSE
     Dates: start: 2014
  12. VANCOMYCIN [Suspect]
     Active Substance: VANCOMYCIN
     Dosage: TAPERING REGIMEN
     Route: 048

REACTIONS (2)
  - No adverse event [Unknown]
  - Drug resistance [Unknown]
